FAERS Safety Report 4621597-2 (Version None)
Quarter: 2005Q1

REPORT INFORMATION
  Report Type: 
  Country: None (occurrence: None)
  Receive Date: 20050329
  Receipt Date: 20040614
  Transmission Date: 20050727
  Serious: Yes (Other)
  Sender: FDA-Public Use
  Company Number: 9815

PATIENT
  Age: 45 Year
  Sex: Female

DRUGS (3)
  1. METHOTREXATE [Suspect]
  2. ETANERCEPT [Suspect]
     Dosage: 25 MG 2/WK
     Dates: start: 20021101, end: 20040322
  3. ETANERCEPT [Suspect]
     Dosage: 25 MG 2/WK
     Dates: start: 20040405

REACTIONS (1)
  - SUBCUTANEOUS ABSCESS [None]
